FAERS Safety Report 15710731 (Version 1)
Quarter: 2018Q4

REPORT INFORMATION
  Report Type: Report from Study
  Country: BR (occurrence: BR)
  Receive Date: 20181211
  Receipt Date: 20181211
  Transmission Date: 20190205
  Serious: Yes (Hospitalization, Other)
  Sender: FDA-Public Use
  Company Number: BR-SA-2018SA245400

PATIENT
  Sex: Male
  Weight: 47 kg

DRUGS (5)
  1. INSULIN GLARGINE [Suspect]
     Active Substance: INSULIN GLARGINE
     Indication: DIABETES MELLITUS
     Dosage: 15 IU IN THE MORNING AND 10 IU AT NIGHT
     Route: 058
     Dates: start: 20180723
  2. HUMALOG [Concomitant]
     Active Substance: INSULIN LISPRO
     Indication: DIABETES MELLITUS
     Dosage: UNK, TID
     Route: 058
     Dates: start: 20180730
  3. CENTRUM ADVANCE [Concomitant]
     Active Substance: VITAMINS
     Indication: IMMUNODEFICIENCY
     Dosage: 1 DF, QD
     Route: 048
     Dates: start: 20180827
  4. PANTOPRAZOLE [Concomitant]
     Active Substance: PANTOPRAZOLE
     Indication: GASTROINTESTINAL DISORDER THERAPY
     Dosage: 20 MG, QD
     Route: 048
     Dates: start: 20180730
  5. ADDERA D3 [Concomitant]
     Active Substance: CHOLECALCIFEROL
     Indication: IMMUNODEFICIENCY
     Dosage: 4 GTT DROPS, QD
     Route: 048
     Dates: start: 20180730

REACTIONS (5)
  - Product use issue [Unknown]
  - Gastroenteritis [Unknown]
  - Weight decreased [Not Recovered/Not Resolved]
  - Hyperglycaemia [Recovered/Resolved]
  - Hypoglycaemia [Unknown]
